FAERS Safety Report 26141146 (Version 2)
Quarter: 2025Q4

REPORT INFORMATION
  Report Type: Report from Study
  Country: US (occurrence: US)
  Receive Date: 20251210
  Receipt Date: 20251231
  Transmission Date: 20260117
  Serious: No
  Sender: PFIZER
  Company Number: US-PFIZER INC-202500237500

PATIENT
  Age: 33 Year
  Sex: Female

DRUGS (1)
  1. CIBINQO [Suspect]
     Active Substance: ABROCITINIB
     Indication: Dermatitis atopic
     Dosage: 100 MG, 2X/DAY

REACTIONS (2)
  - Lichen planopilaris [Not Recovered/Not Resolved]
  - Therapeutic product effect incomplete [Unknown]
